FAERS Safety Report 6542972-5 (Version None)
Quarter: 2010Q1

REPORT INFORMATION
  Report Type: 
  Country: None (occurrence: None)
  Receive Date: 20100120
  Receipt Date: 20100111
  Transmission Date: 20100710
  Serious: No
  Sender: FDA-Public Use
  Company Number: BR-ROCHE-672224

PATIENT
  Sex: Female
  Weight: 54 kg

DRUGS (2)
  1. ROACUTAN [Suspect]
     Indication: ACNE
     Route: 048
     Dates: start: 20091005, end: 20091101
  2. YAZ [Concomitant]
     Indication: CONTRACEPTION
     Route: 048

REACTIONS (3)
  - BLOOD HUMAN CHORIONIC GONADOTROPIN ABNORMAL [None]
  - OLIGOMENORRHOEA [None]
  - PREGNANCY [None]
